FAERS Safety Report 6376617-4 (Version None)
Quarter: 2009Q3

REPORT INFORMATION
  Report Type: 
  Country: None (occurrence: None)
  Receive Date: 20090925
  Receipt Date: 20090914
  Transmission Date: 20100115
  Serious: Yes (Hospitalization)
  Sender: FDA-Public Use
  Company Number: IE-PFIZER INC-2009268647

PATIENT
  Age: 60 Year

DRUGS (2)
  1. INSPRA [Suspect]
     Indication: DIASTOLIC DYSFUNCTION
     Dosage: 25 MG, 1X/DAY
  2. INSPRA [Suspect]
     Indication: VENTRICULAR HYPERTROPHY

REACTIONS (4)
  - DYSPNOEA [None]
  - GASTROINTESTINAL HAEMORRHAGE [None]
  - PALPITATIONS [None]
  - SYNCOPE [None]
